FAERS Safety Report 14713019 (Version 1)
Quarter: 2018Q2

REPORT INFORMATION
  Report Type: Spontaneous
  Country: US (occurrence: US)
  Receive Date: 20180404
  Receipt Date: 20180404
  Transmission Date: 20180711
  Serious: No
  Sender: FDA-Public Use
  Company Number: US-CIPLA LTD.-2017US17701

PATIENT

DRUGS (1)
  1. SERTRALINE [Suspect]
     Active Substance: SERTRALINE HYDROCHLORIDE
     Indication: ANXIETY
     Dosage: 200MG (TWO 100 MG) TABLETS IN THE MORNING DAILY
     Route: 048

REACTIONS (2)
  - Product quality issue [Unknown]
  - Anxiety [Not Recovered/Not Resolved]
